FAERS Safety Report 8936010 (Version 1)
Quarter: 2012Q4

REPORT INFORMATION
  Report Type: 
  Country: FR (occurrence: FR)
  Receive Date: 20121130
  Receipt Date: 20121130
  Transmission Date: 20130627
  Serious: Yes (Hospitalization)
  Sender: FDA-Public Use
  Company Number: FR-CELGENEUS-056-21880-12112943

PATIENT
  Age: 81 Year
  Sex: Male

DRUGS (12)
  1. REVLIMID [Suspect]
     Indication: MULTIPLE MYELOMA
     Dosage: 25 Milligram
     Route: 048
     Dates: start: 20120529, end: 20120718
  2. NEODEX [Suspect]
     Indication: MULTIPLE MYELOMA
     Route: 048
     Dates: start: 20120529, end: 20120718
  3. ACTRAPID [Concomitant]
     Indication: DIABETES MELLITUS
     Route: 058
  4. INEXIUM [Concomitant]
     Indication: DRUG USE FOR UNKNOWN INDICATION
     Route: 048
  5. KARDEGIC [Concomitant]
     Indication: DRUG USE FOR UNKNOWN INDICATION
     Dosage: 75 Milligram
     Route: 048
  6. COTAREG [Concomitant]
     Indication: HYPERTENSION ARTERIAL
     Dosage: 80/12.5 mg
     Route: 048
  7. DAFALGAN [Concomitant]
     Indication: PAIN
     Route: 048
  8. PERMIXION [Concomitant]
     Indication: DRUG USE FOR UNKNOWN INDICATION
     Dosage: 320 Milligram
     Route: 048
  9. ZINNAT [Concomitant]
     Indication: DRUG USE FOR UNKNOWN INDICATION
     Route: 048
  10. LEDERFOLINE [Concomitant]
     Indication: DRUG USE FOR UNKNOWN INDICATION
     Route: 048
  11. DIMETANE [Concomitant]
     Indication: DRUG USE FOR UNKNOWN INDICATION
     Route: 048
  12. AREDIA [Concomitant]
     Indication: HYPERCALCAEMIA
     Route: 041

REACTIONS (3)
  - Convulsion [Recovered/Resolved]
  - Oedema peripheral [None]
  - Blood pressure systolic increased [None]
